FAERS Safety Report 26100203 (Version 1)
Quarter: 2025Q4

REPORT INFORMATION
  Report Type: Report from Study
  Country: CN (occurrence: CN)
  Receive Date: 20251128
  Receipt Date: 20251128
  Transmission Date: 20260118
  Serious: Yes (Other)
  Sender: ROCHE
  Company Number: CN-ROCHE-10000443485

PATIENT
  Age: 33 Year
  Sex: Male
  Weight: 93 kg

DRUGS (33)
  1. POLATUZUMAB VEDOTIN [Suspect]
     Active Substance: POLATUZUMAB VEDOTIN
     Indication: Diffuse large B-cell lymphoma
     Route: 042
     Dates: start: 20250226, end: 20250226
  2. RITUXIMAB [Suspect]
     Active Substance: RITUXIMAB
     Indication: Diffuse large B-cell lymphoma
     Route: 042
     Dates: start: 20250225, end: 20250225
  3. RITUXIMAB [Suspect]
     Active Substance: RITUXIMAB
     Route: 042
     Dates: start: 20250807, end: 20250807
  4. CYCLOPHOSPHAMIDE [Suspect]
     Active Substance: CYCLOPHOSPHAMIDE
     Indication: Diffuse large B-cell lymphoma
     Route: 042
     Dates: start: 20250227, end: 20250227
  5. CYCLOPHOSPHAMIDE [Suspect]
     Active Substance: CYCLOPHOSPHAMIDE
     Route: 042
     Dates: start: 20250808, end: 20250808
  6. HYDROCORTISONE SODIUM SUCCINATE [Suspect]
     Active Substance: HYDROCORTISONE SODIUM SUCCINATE
     Indication: Diffuse large B-cell lymphoma
     Route: 042
     Dates: start: 20250227, end: 20250304
  7. DOXORUBICIN [Suspect]
     Active Substance: DOXORUBICIN
     Indication: Diffuse large B-cell lymphoma
     Route: 042
     Dates: start: 20250227, end: 20250301
  8. DOXORUBICIN [Suspect]
     Active Substance: DOXORUBICIN
     Route: 042
     Dates: start: 20250808, end: 20250810
  9. PREDNISOLONE [Suspect]
     Active Substance: PREDNISOLONE
     Indication: Diffuse large B-cell lymphoma
     Route: 042
     Dates: start: 20250808, end: 20250813
  10. VINCRISTINE [Suspect]
     Active Substance: VINCRISTINE
     Indication: Diffuse large B-cell lymphoma
     Route: 042
     Dates: start: 20250808, end: 20250808
  11. METHOTREXATE [Suspect]
     Active Substance: METHOTREXATE
     Indication: Diffuse large B-cell lymphoma
     Route: 042
     Dates: start: 20250811, end: 20250811
  12. Esomeprazole enteric-coated capsules [Concomitant]
  13. Dolasetron mesylate injection (Shi Siyao) [Concomitant]
  14. Sodium folinate  powder injection [Concomitant]
  15. Sodium folinate injection [Concomitant]
  16. SODIUM BICARBONATE [Concomitant]
     Active Substance: SODIUM BICARBONATE
  17. DEXAMETHASONE SODIUM PHOSPHATE [Concomitant]
     Active Substance: DEXAMETHASONE SODIUM PHOSPHATE
  18. DIPHENHYDRAMINE HYDROCHLORIDE [Concomitant]
     Active Substance: DIPHENHYDRAMINE HYDROCHLORIDE
  19. MESNA [Concomitant]
     Active Substance: MESNA
  20. VITAMIN B6 [Concomitant]
     Active Substance: PYRIDOXINE HYDROCHLORIDE
  21. ASCORBIC ACID [Concomitant]
     Active Substance: ASCORBIC ACID
  22. Human granulocyte stimulating factor injection [Concomitant]
  23. Recombinant human thrombopoietin injection [Concomitant]
  24. Multivitamins for Injection (12) [Concomitant]
  25. Magnesium isoglycyrrhizinate injection [Concomitant]
  26. Human serum albumin injection [Concomitant]
  27. Sodium omeprazole  for injection [Concomitant]
  28. Potassium chloride injection (plastic ampoule) [Concomitant]
  29. Ondansetron hydrochloride  (Qilu) tablets [Concomitant]
  30. Irradiated leukocyte-depleted apheresis platelets were transfused [Concomitant]
  31. BICYCLOL [Concomitant]
     Active Substance: BICYCLOL
  32. Glutathione for Injection (Chongqing Yaoyou) [Concomitant]
  33. Acetaminophen tablets (own preparation) [Concomitant]

REACTIONS (1)
  - Drug-induced liver injury [Recovered/Resolved]

NARRATIVE: CASE EVENT DATE: 20250831
